FAERS Safety Report 17226906 (Version 9)
Quarter: 2023Q1

REPORT INFORMATION
  Report Type: Report from Study
  Country: US (occurrence: US)
  Receive Date: 20200102
  Receipt Date: 20230309
  Transmission Date: 20230417
  Serious: Yes (Other)
  Sender: FDA-Public Use
  Company Number: US-SHIRE-US201945195

PATIENT
  Age: 58 Year
  Sex: Female
  Weight: 68 kg

DRUGS (27)
  1. .ALPHA.1-PROTEINASE INHIBITOR HUMAN [Suspect]
     Active Substance: .ALPHA.1-PROTEINASE INHIBITOR HUMAN
     Indication: Alpha-1 antitrypsin deficiency
     Dosage: 60 MILLIGRAM/KILOGRAM, 1X/WEEK
     Route: 042
     Dates: start: 20100414
  2. .ALPHA.1-PROTEINASE INHIBITOR HUMAN [Suspect]
     Active Substance: .ALPHA.1-PROTEINASE INHIBITOR HUMAN
     Indication: Alpha-1 antitrypsin deficiency
     Dosage: 60 MILLIGRAM/KILOGRAM, 1X/WEEK
     Route: 042
     Dates: start: 20100414
  3. .ALPHA.1-PROTEINASE INHIBITOR HUMAN [Suspect]
     Active Substance: .ALPHA.1-PROTEINASE INHIBITOR HUMAN
     Dosage: 8824 MILLIGRAM
     Route: 042
     Dates: start: 20100414
  4. .ALPHA.1-PROTEINASE INHIBITOR HUMAN [Suspect]
     Active Substance: .ALPHA.1-PROTEINASE INHIBITOR HUMAN
     Dosage: 8824 MILLIGRAM
     Route: 042
     Dates: start: 20100414
  5. .ALPHA.1-PROTEINASE INHIBITOR HUMAN [Suspect]
     Active Substance: .ALPHA.1-PROTEINASE INHIBITOR HUMAN
     Dosage: 120 MILLIGRAM/KILOGRAM, Q2WEEKS
     Route: 042
     Dates: start: 20100414
  6. .ALPHA.1-PROTEINASE INHIBITOR HUMAN [Suspect]
     Active Substance: .ALPHA.1-PROTEINASE INHIBITOR HUMAN
     Dosage: 120 MILLIGRAM/KILOGRAM, Q2WEEKS
     Route: 042
     Dates: start: 20100414
  7. .ALPHA.1-PROTEINASE INHIBITOR HUMAN [Suspect]
     Active Substance: .ALPHA.1-PROTEINASE INHIBITOR HUMAN
     Dosage: 60 MILLIGRAM/KILOGRAM, 1X/WEEK
     Route: 042
     Dates: start: 20100416
  8. .ALPHA.1-PROTEINASE INHIBITOR HUMAN [Suspect]
     Active Substance: .ALPHA.1-PROTEINASE INHIBITOR HUMAN
     Dosage: 60 MILLIGRAM/KILOGRAM, 1X/WEEK
     Route: 042
     Dates: start: 20100416
  9. .ALPHA.1-PROTEINASE INHIBITOR HUMAN [Suspect]
     Active Substance: .ALPHA.1-PROTEINASE INHIBITOR HUMAN
     Dosage: 120 MILLIGRAM/KILOGRAM, Q2WEEKS
     Route: 042
     Dates: start: 20100416
  10. .ALPHA.1-PROTEINASE INHIBITOR HUMAN [Suspect]
     Active Substance: .ALPHA.1-PROTEINASE INHIBITOR HUMAN
     Dosage: 120 MILLIGRAM/KILOGRAM, Q2WEEKS
     Route: 042
     Dates: start: 20100416
  11. DIPHENHYDRAMINE [Concomitant]
     Active Substance: DIPHENHYDRAMINE
  12. HEPARIN [Concomitant]
     Active Substance: HEPARIN SODIUM
  13. SODIUM CHLORIDE [Concomitant]
     Active Substance: SODIUM CHLORIDE
  14. SODIUM CHLORIDE [Concomitant]
     Active Substance: SODIUM CHLORIDE
  15. EPINEPHRINE [Concomitant]
     Active Substance: EPINEPHRINE
  16. LIDOCAINE [Concomitant]
     Active Substance: LIDOCAINE
  17. ADVAIR HFA [Concomitant]
     Active Substance: FLUTICASONE PROPIONATE\SALMETEROL XINAFOATE
  18. OREGANO LEAF OIL [Concomitant]
     Active Substance: OREGANO LEAF OIL
  19. BENADRYL [Concomitant]
     Active Substance: DIPHENHYDRAMINE HYDROCHLORIDE
  20. PROAIR HFA [Concomitant]
     Active Substance: ALBUTEROL SULFATE
  21. OXYGEN [Concomitant]
     Active Substance: OXYGEN
  22. COLISTIMETHATE SODIUM [Concomitant]
     Active Substance: COLISTIMETHATE SODIUM
  23. MAXIMUM STRENGTH BLUE EMU PAIN RELIEF BLU EMU [Concomitant]
     Active Substance: TROLAMINE SALICYLATE
  24. MAGNESIUM [Concomitant]
     Active Substance: MAGNESIUM
  25. LIDOCAINE [Concomitant]
     Active Substance: LIDOCAINE
     Route: 065
  26. VITAMIN C [Concomitant]
     Active Substance: ASCORBIC ACID
  27. ZINC [Concomitant]
     Active Substance: ZINC

REACTIONS (16)
  - Rheumatoid arthritis [Unknown]
  - Respiratory tract infection [Unknown]
  - Pseudolymphoma [Unknown]
  - Respiratory tract congestion [Unknown]
  - Respiratory symptom [Unknown]
  - Condition aggravated [Unknown]
  - Tendonitis [Unknown]
  - COVID-19 [Unknown]
  - Laboratory test abnormal [Unknown]
  - Arthralgia [Unknown]
  - Pyrexia [Unknown]
  - Dyspnoea [Unknown]
  - Cough [Unknown]
  - Asthenia [Unknown]
  - Fatigue [Unknown]
  - Product dose omission issue [Unknown]

NARRATIVE: CASE EVENT DATE: 20200117
